FAERS Safety Report 5081641-8 (Version None)
Quarter: 2006Q3

REPORT INFORMATION
  Report Type: 
  Country: None (occurrence: None)
  Receive Date: 20060811
  Receipt Date: 20060728
  Transmission Date: 20061208
  Serious: Yes (Disabling)
  Sender: FDA-Public Use
  Company Number: VNL_0178_2006

PATIENT
  Sex: Male

DRUGS (1)
  1. APO-GO [Suspect]
     Indication: DRUG USE FOR UNKNOWN INDICATION
     Dosage: DF  INFUSION SC
     Route: 058

REACTIONS (5)
  - ABASIA [None]
  - ENURESIS [None]
  - FEELING ABNORMAL [None]
  - HYPERSOMNIA [None]
  - TREATMENT NONCOMPLIANCE [None]
